FAERS Safety Report 10194257 (Version 1)
Quarter: 2014Q2

REPORT INFORMATION
  Report Type: Spontaneous
  Country: FR (occurrence: FR)
  Receive Date: 20140526
  Receipt Date: 20140526
  Transmission Date: 20141212
  Serious: Yes (Hospitalization)
  Sender: FDA-Public Use
  Company Number: FR-ROCHE-1406135

PATIENT
  Age: 51 Year
  Sex: Female

DRUGS (9)
  1. MABTHERA [Suspect]
     Indication: B-CELL LYMPHOMA
     Dosage: FROM DAY 1 TO DAY 15
     Route: 042
     Dates: start: 20140207
  2. SOLUPRED (FRANCE) [Concomitant]
     Indication: PREMEDICATION
     Route: 065
     Dates: start: 20140219
  3. SOLUPRED (FRANCE) [Concomitant]
     Route: 048
     Dates: start: 20140324
  4. EUPANTOL [Concomitant]
     Route: 048
  5. FASTURTEC [Concomitant]
     Indication: PREMEDICATION
     Route: 065
  6. POLARAMINE [Concomitant]
     Indication: PREMEDICATION
     Dosage: 2 AMPULES
     Route: 065
  7. POLARAMINE [Concomitant]
     Dosage: 1 AMPULE
     Route: 065
     Dates: start: 20140219
  8. POLARAMINE [Concomitant]
     Route: 065
     Dates: start: 20140225
  9. POLARAMINE [Concomitant]
     Dosage: 3 AMPULES
     Route: 065
     Dates: start: 20140324, end: 20140324

REACTIONS (2)
  - Anaphylactoid shock [Recovered/Resolved with Sequelae]
  - Stress cardiomyopathy [Recovering/Resolving]
